FAERS Safety Report 9123051 (Version 3)
Quarter: 2013Q2

REPORT INFORMATION
  Report Type: Spontaneous
  Country: US (occurrence: US)
  Receive Date: 20130227
  Receipt Date: 20130509
  Transmission Date: 20140414
  Serious: Yes (Other)
  Sender: FDA-Public Use
  Company Number: US-ELI_LILLY_AND_COMPANY-US201302004057

PATIENT
  Age: 65 Year
  Sex: Female
  Weight: 78.01 kg

DRUGS (22)
  1. FORTEO [Suspect]
     Indication: OSTEOPOROSIS
     Dosage: 20 UG, QD
     Dates: start: 20120913
  2. FORTEO [Suspect]
     Dosage: 20 UG, QD
  3. RALOXIFENE HYDROCHLORIDE [Suspect]
     Indication: OSTEOPOROSIS
     Dosage: 60 MG, QD
     Dates: start: 201209
  4. FLOVENT [Concomitant]
     Dosage: UNK
  5. FLOVENT [Concomitant]
     Dosage: 250 MG, BID
  6. PROAIR HFA [Concomitant]
     Dosage: UNK
  7. ALBUTEROL [Concomitant]
     Dosage: UNK UNK, PRN
     Route: 055
  8. AMITRIPTYLIN [Concomitant]
     Dosage: 50 MG, UNK
  9. AMITRIPTYLIN [Concomitant]
     Dosage: 50 MG, QD
  10. LISINOPRIL [Concomitant]
     Dosage: 20 MG, UNK
  11. LISINOPRIL [Concomitant]
     Dosage: 20 MG, QD
  12. FUROSEMIDE [Concomitant]
     Dosage: 20 MG, UNK
  13. FUROSEMIDE [Concomitant]
     Dosage: 40 MG, QOD
  14. NASONEX [Concomitant]
     Dosage: UNK
  15. METOPROLOL [Concomitant]
     Dosage: 50 MG, UNK
  16. ASPIRIN [Concomitant]
     Dosage: 325 MG, UNK
  17. ASPIRIN [Concomitant]
     Dosage: 81 MG, QD
  18. OMEGA 3-6-9 [Concomitant]
     Dosage: UNK
  19. VITAMIN D3 [Concomitant]
     Dosage: 1000 IU, BID
  20. VITAMIN E [Concomitant]
     Dosage: UNK, QD
  21. NEXIUM [Concomitant]
     Dosage: 40 MG, PRN
  22. PREMARIN [Concomitant]
     Dosage: UNK UNK, WEEKLY

REACTIONS (11)
  - Femur fracture [Unknown]
  - Pruritus generalised [Unknown]
  - Skin mass [Unknown]
  - Anxiety [Unknown]
  - Malaise [Unknown]
  - Somnolence [Unknown]
  - Injection site bruising [Unknown]
  - Foot fracture [Unknown]
  - Muscle strain [Unknown]
  - Pain [Unknown]
  - Off label use [Unknown]
